FAERS Safety Report 20049474 (Version 1)
Quarter: 2021Q4

REPORT INFORMATION
  Report Type: Spontaneous
  Country: US (occurrence: US)
  Receive Date: 20211109
  Receipt Date: 20211109
  Transmission Date: 20220303
  Serious: No
  Sender: FDA-Public Use
  Company Number: US-VERTEX PHARMACEUTICALS-2021-017103

PATIENT
  Age: 7 Year
  Sex: Female

DRUGS (1)
  1. TRIKAFTA [Suspect]
     Active Substance: ELEXACAFTOR\IVACAFTOR\TEZACAFTOR
     Indication: Cystic fibrosis
     Dosage: (50MG ELEXACAFTOR/ 25MG TEZACAFTOR/ 37.5MG IVACAFTOR; 75MG IVACAFTOR) FREQ UNK
     Route: 048
     Dates: start: 202109

REACTIONS (3)
  - Sensitive skin [Unknown]
  - Hair growth abnormal [Unknown]
  - Breast enlargement [Unknown]

NARRATIVE: CASE EVENT DATE: 20210101
